FAERS Safety Report 7302547-7 (Version None)
Quarter: 2011Q1

REPORT INFORMATION
  Report Type: 
  Country: None (occurrence: None)
  Receive Date: 20110218
  Receipt Date: 20110211
  Transmission Date: 20110831
  Serious: No
  Sender: FDA-Public Use
  Company Number: US-PFIZER INC-2011032348

PATIENT
  Age: 60 Year
  Sex: Female

DRUGS (2)
  1. PRAVASTATIN [Concomitant]
     Dosage: UNK
  2. XALATAN [Suspect]
     Dosage: UNK

REACTIONS (1)
  - THIRST [None]
